FAERS Safety Report 5518710-1 (Version None)
Quarter: 2007Q4

REPORT INFORMATION
  Report Type: 
  Country: None (occurrence: None)
  Receive Date: 20071113
  Receipt Date: 20071030
  Transmission Date: 20080405
  Serious: No
  Sender: FDA-Public Use
  Company Number: 2007-00726

PATIENT
  Age: 71 Year
  Sex: Female
  Weight: 52 kg

DRUGS (8)
  1. VELCADE [Suspect]
     Indication: MULTIPLE MYELOMA
     Dosage: 1.80 MG, INTRAVENOUS
     Route: 042
     Dates: start: 20070209, end: 20070323
  2. PREDNISOLONE [Concomitant]
  3. LOXOPROFEN SODIUM (LOXOPROFEN SODIUM) [Concomitant]
  4. MUCOSTA (REBAMIPIDE) [Concomitant]
  5. FAMOTIDINE [Concomitant]
  6. ALLOPURINOL [Concomitant]
  7. FUROSEMIDE [Concomitant]
  8. OXYCODONE HCL [Concomitant]

REACTIONS (4)
  - BRONCHITIS [None]
  - HERPES VIRUS INFECTION [None]
  - PYREXIA [None]
  - RASH PAPULAR [None]
